FAERS Safety Report 12983712 (Version 1)
Quarter: 2016Q4

REPORT INFORMATION
  Report Type: Spontaneous
  Country: IT (occurrence: IT)
  Receive Date: 20161129
  Receipt Date: 20161129
  Transmission Date: 20170207
  Serious: Yes (Other)
  Sender: FDA-Public Use
  Company Number: IT-JNJFOC-20161128492

PATIENT
  Age: 32 Year
  Sex: Male

DRUGS (2)
  1. RISPERDAL [Suspect]
     Active Substance: RISPERIDONE
     Indication: PRODUCT USED FOR UNKNOWN INDICATION
     Route: 048
  2. RISPERDAL [Suspect]
     Active Substance: RISPERIDONE
     Indication: PRODUCT USED FOR UNKNOWN INDICATION
     Dosage: TOOK AN UNSPECIFIED QUANTITY OF RISPERIDONE ORAL DROPS ONCE A TOTAL
     Route: 048
     Dates: start: 20161126, end: 20161126

REACTIONS (3)
  - Intentional self-injury [Unknown]
  - Sopor [Unknown]
  - Vomiting [Unknown]

NARRATIVE: CASE EVENT DATE: 20161126
